FAERS Safety Report 5267749-2 (Version None)
Quarter: 2007Q1

REPORT INFORMATION
  Report Type: 
  Country: None (occurrence: None)
  Receive Date: 20070316
  Receipt Date: 20070306
  Transmission Date: 20070707
  Serious: Yes (Hospitalization, Other)
  Sender: FDA-Public Use
  Company Number: US-PFIZER INC-2007014588

PATIENT
  Sex: Female
  Weight: 65.3 kg

DRUGS (1)
  1. CELEBREX [Suspect]
     Indication: NECK PAIN
     Dates: start: 20000801, end: 20041001

REACTIONS (2)
  - CARDIOVASCULAR DISORDER [None]
  - CEREBROVASCULAR ACCIDENT [None]
